FAERS Safety Report 22007024 (Version 1)
Quarter: 2023Q1

REPORT INFORMATION
  Report Type: Spontaneous
  Country: PL (occurrence: PL)
  Receive Date: 20230217
  Receipt Date: 20230217
  Transmission Date: 20230417
  Serious: Yes (Other)
  Sender: FDA-Public Use
  Company Number: PL-KRKA-PL2022K14488LIT

PATIENT
  Age: 29 Year
  Sex: Male

DRUGS (18)
  1. DEXAMETHASONE [Suspect]
     Active Substance: DEXAMETHASONE
     Indication: Plasma cell myeloma
     Dosage: UNK
     Route: 065
  2. BENDAMUSTINE [Suspect]
     Active Substance: BENDAMUSTINE
     Indication: Plasma cell myeloma
     Dosage: UNK
     Route: 065
  3. BENDAMUSTINE [Suspect]
     Active Substance: BENDAMUSTINE
     Indication: Bone marrow conditioning regimen
  4. ISATUXIMAB [Suspect]
     Active Substance: ISATUXIMAB
     Indication: Plasma cell myeloma
     Dosage: UNK
     Route: 065
  5. BORTEZOMIB [Suspect]
     Active Substance: BORTEZOMIB
     Indication: Chemotherapy multiple agents systemic
     Dosage: TRIPLET VTD REGIMEN (6 CYCLES)
     Route: 065
  6. BORTEZOMIB [Suspect]
     Active Substance: BORTEZOMIB
     Indication: Plasma cell myeloma
  7. REVLIMID [Concomitant]
     Active Substance: LENALIDOMIDE
     Indication: Plasma cell myeloma
     Dosage: KRD-PACE PROTOCOL
  8. KYPROLIS [Concomitant]
     Active Substance: CARFILZOMIB
     Indication: Plasma cell myeloma
     Dosage: KRD-PACE PROTOCOL
  9. DEXAMETHASONE [Concomitant]
     Active Substance: DEXAMETHASONE
     Indication: Plasma cell myeloma
     Dosage: DARA VD PROTOCOL
  10. DEXAMETHASONE [Concomitant]
     Active Substance: DEXAMETHASONE
     Dosage: KRD-PACE PROTOCOL
  11. PLATINOL [Concomitant]
     Active Substance: CISPLATIN
     Indication: Plasma cell myeloma
     Dosage: KRD-PACE PROTOCOL
  12. ADRIAMYCIN [Concomitant]
     Active Substance: DOXORUBICIN HYDROCHLORIDE
     Indication: Plasma cell myeloma
     Dosage: KRD-PACE PROTOCOL
  13. CYCLOPHOSPHAMIDE [Concomitant]
     Active Substance: CYCLOPHOSPHAMIDE
     Indication: Plasma cell myeloma
     Dosage: KRD-PACE PROTOCOL
  14. ETOPOSIDE [Concomitant]
     Active Substance: ETOPOSIDE
     Indication: Plasma cell myeloma
     Dosage: KRD-PACE PROTOCOL
  15. DEXAMETHASONE [Suspect]
     Active Substance: DEXAMETHASONE
  16. THALIDOMIDE [Suspect]
     Active Substance: THALIDOMIDE
  17. DEXAMETHASONE [Suspect]
     Active Substance: DEXAMETHASONE
  18. THALIDOMIDE [Suspect]
     Active Substance: THALIDOMIDE

REACTIONS (1)
  - Therapy partial responder [Unknown]
